FAERS Safety Report 21214792 (Version 7)
Quarter: 2024Q2

REPORT INFORMATION
  Report Type: Other
  Country: ES (occurrence: None)
  Receive Date: 20220816
  Receipt Date: 20240607
  Transmission Date: 20240715
  Serious: No
  Sender: FDA-Public Use
  Company Number: ES-ROCHE-2874669

PATIENT
  Age: 38 Year
  Sex: Female

DRUGS (26)
  1. OCRELIZUMAB [Suspect]
     Active Substance: OCRELIZUMAB
     Indication: Relapsing-remitting multiple sclerosis
     Dosage: 300 MG AT DAY 0 AND 14, THEN 600 MG EVERY 6 MONTHS
     Route: 042
     Dates: start: 20200415, end: 20200429
  2. OCRELIZUMAB [Suspect]
     Active Substance: OCRELIZUMAB
     Dosage: SUBSEQUENT DOSES OF OCRELIZUMAB: 29/OCT/2021, 29/APR/2022, 07/NOV/2022, 29/APR/2020, 08/MAY/2023, 10
     Route: 042
     Dates: start: 20201020
  3. OCRELIZUMAB [Suspect]
     Active Substance: OCRELIZUMAB
     Route: 042
     Dates: start: 20240517, end: 20240517
  4. CHOLECALCIFEROL [Concomitant]
     Active Substance: CHOLECALCIFEROL
     Route: 048
     Dates: start: 20170601
  5. METHYLPREDNISOLONE [Concomitant]
     Active Substance: METHYLPREDNISOLONE
     Route: 042
     Dates: start: 20201020, end: 20201020
  6. METHYLPREDNISOLONE [Concomitant]
     Active Substance: METHYLPREDNISOLONE
     Route: 042
     Dates: start: 20221107, end: 20221107
  7. METHYLPREDNISOLONE [Concomitant]
     Active Substance: METHYLPREDNISOLONE
     Route: 042
     Dates: start: 20220429, end: 20220429
  8. METHYLPREDNISOLONE [Concomitant]
     Active Substance: METHYLPREDNISOLONE
     Route: 042
     Dates: start: 20230508, end: 20230508
  9. METHYLPREDNISOLONE [Concomitant]
     Active Substance: METHYLPREDNISOLONE
     Route: 042
     Dates: start: 20231110, end: 20231110
  10. POLARAMINE [Concomitant]
     Active Substance: DEXCHLORPHENIRAMINE MALEATE
     Route: 042
     Dates: start: 20201020, end: 20201020
  11. POLARAMINE [Concomitant]
     Active Substance: DEXCHLORPHENIRAMINE MALEATE
     Route: 042
     Dates: start: 20220429, end: 20220429
  12. POLARAMINE [Concomitant]
     Active Substance: DEXCHLORPHENIRAMINE MALEATE
     Route: 042
     Dates: start: 20221107, end: 20221107
  13. POLARAMINE [Concomitant]
     Active Substance: DEXCHLORPHENIRAMINE MALEATE
     Route: 042
     Dates: start: 20230508, end: 20230508
  14. POLARAMINE [Concomitant]
     Active Substance: DEXCHLORPHENIRAMINE MALEATE
     Route: 042
     Dates: start: 20231110, end: 20231110
  15. ACETAMINOPHEN [Concomitant]
     Active Substance: ACETAMINOPHEN
     Route: 042
     Dates: start: 20201020, end: 20201020
  16. ACETAMINOPHEN [Concomitant]
     Active Substance: ACETAMINOPHEN
     Route: 042
     Dates: start: 20220429, end: 20220429
  17. ACETAMINOPHEN [Concomitant]
     Active Substance: ACETAMINOPHEN
     Route: 042
     Dates: start: 20221107, end: 20221107
  18. ACETAMINOPHEN [Concomitant]
     Active Substance: ACETAMINOPHEN
     Route: 042
     Dates: start: 20230508, end: 20230508
  19. ACETAMINOPHEN [Concomitant]
     Active Substance: ACETAMINOPHEN
     Route: 042
     Dates: start: 20231110, end: 20231110
  20. TEGRETOL [Concomitant]
     Active Substance: CARBAMAZEPINE
     Route: 048
     Dates: start: 20200303
  21. CYANOCOBALAMIN\FOLIC ACID [Concomitant]
     Active Substance: CYANOCOBALAMIN\FOLIC ACID
     Route: 048
     Dates: start: 20200828, end: 20201117
  22. IBUPROFEN [Concomitant]
     Active Substance: IBUPROFEN
     Route: 048
     Dates: start: 20200828, end: 20240220
  23. TRYPTIZOL [Concomitant]
     Active Substance: AMITRIPTYLINE HYDROCHLORIDE
     Route: 048
     Dates: start: 20211029
  24. HYDROCORTISONE SODIUM PHOSPHATE [Concomitant]
     Active Substance: HYDROCORTISONE SODIUM PHOSPHATE
     Route: 042
     Dates: start: 20221107, end: 20221107
  25. REMDESIVIR [Concomitant]
     Active Substance: REMDESIVIR
     Route: 042
     Dates: start: 20220505, end: 20220507
  26. DIAZEPAM [Concomitant]
     Active Substance: DIAZEPAM
     Route: 048
     Dates: start: 20150610

REACTIONS (3)
  - Urinary tract infection [Recovered/Resolved]
  - COVID-19 [Recovered/Resolved]
  - Respiratory tract infection [Recovering/Resolving]

NARRATIVE: CASE EVENT DATE: 20201101
